FAERS Safety Report 4442039-6 (Version None)
Quarter: 2004Q3

REPORT INFORMATION
  Report Type: 
  Country: None (occurrence: None)
  Receive Date: 20040901
  Receipt Date: 20040826
  Transmission Date: 20050211
  Serious: Yes (Other)
  Sender: FDA-Public Use
  Company Number: THQ2004A00741

PATIENT
  Age: 83 Year

DRUGS (1)
  1. LANSOPRAZOLE [Suspect]
     Dosage: 30 MG PER ORAL
     Route: 048
     Dates: start: 20040607, end: 20040730

REACTIONS (1)
  - CUTANEOUS LUPUS ERYTHEMATOSUS [None]
